FAERS Safety Report 15571750 (Version 1)
Quarter: 2018Q4

REPORT INFORMATION
  Report Type: Spontaneous
  Country: PT (occurrence: PT)
  Receive Date: 20181031
  Receipt Date: 20181031
  Transmission Date: 20190205
  Serious: Yes (Disabling, Other)
  Sender: FDA-Public Use
  Company Number: PT-MYLANLABS-2008S1005862

PATIENT
  Age: 81 Year
  Sex: Male

DRUGS (2)
  1. AMIODARONE [Suspect]
     Active Substance: AMIODARONE
     Indication: PRODUCT USED FOR UNKNOWN INDICATION
     Dosage: 200 MG,QD
     Route: 048
  2. SALICYLIC ACID. [Concomitant]
     Active Substance: SALICYLIC ACID
     Indication: PRODUCT USED FOR UNKNOWN INDICATION
     Dosage: 100 MG, QD

REACTIONS (7)
  - Pulmonary fibrosis [Recovering/Resolving]
  - Pulmonary toxicity [Recovered/Resolved]
  - Asthenia [Recovering/Resolving]
  - Wheezing [Recovered/Resolved]
  - Decreased appetite [Recovering/Resolving]
  - Dyspnoea exertional [Recovered/Resolved]
  - Weight decreased [Recovering/Resolving]
